FAERS Safety Report 15580809 (Version 2)
Quarter: 2019Q2

REPORT INFORMATION
  Report Type: Report from Study
  Country: PL (occurrence: PL)
  Receive Date: 20181102
  Receipt Date: 20190530
  Transmission Date: 20190711
  Serious: Yes (Other)
  Sender: FDA-Public Use
  Company Number: PL-CHIESI USA, INC.-PL-2018CHI000466

PATIENT

DRUGS (3)
  1. CUROSURF [Suspect]
     Active Substance: PORACTANT ALFA
     Indication: RESPIRATORY FAILURE
     Dosage: 3 ML, SINGLE
     Route: 039
     Dates: start: 20181016, end: 20181016
  2. CUROSURF [Suspect]
     Active Substance: PORACTANT ALFA
     Indication: OFF LABEL USE
  3. CAFFEINE CITRATE. [Concomitant]
     Active Substance: CAFFEINE CITRATE
     Indication: PRODUCT USED FOR UNKNOWN INDICATION
     Dosage: UNK
     Dates: start: 20181016

REACTIONS (2)
  - Off label use [Unknown]
  - Neonatal hypoxia [Recovered/Resolved]

NARRATIVE: CASE EVENT DATE: 20181016
